FAERS Safety Report 25484542 (Version 1)
Quarter: 2025Q2

REPORT INFORMATION
  Report Type: Spontaneous
  Country: US (occurrence: None)
  Receive Date: 20250626
  Receipt Date: 20250626
  Transmission Date: 20250716
  Serious: Yes (unspecified)
  Sender: FDA-CTU
  Company Number: None

PATIENT
  Age: 80 Year
  Sex: Male
  Weight: 94.5 kg

DRUGS (6)
  1. JARDIANCE [Suspect]
     Active Substance: EMPAGLIFLOZIN
     Route: 048
     Dates: start: 20240912
  2. FINASTERIDE, [Concomitant]
  3. LISINOPRIL [Concomitant]
     Active Substance: LISINOPRIL
  4. AMLODIPINE [Concomitant]
     Active Substance: AMLODIPINE BESYLATE
  5. TAMSULOSIN [Concomitant]
     Active Substance: TAMSULOSIN
  6. COSAMIN DX [Concomitant]

REACTIONS (2)
  - Fungal infection [None]
  - Herpes virus infection [None]

NARRATIVE: CASE EVENT DATE: 20250301
